FAERS Safety Report 8107775-9 (Version None)
Quarter: 2012Q1

REPORT INFORMATION
  Report Type: 
  Country: None (occurrence: None)
  Receive Date: 20120202
  Receipt Date: 20120127
  Transmission Date: 20120608
  Serious: Yes (Hospitalization)
  Sender: FDA-Public Use
  Company Number: US-ALEXION PHARMACEUTICALS INC.-A201200118

PATIENT
  Sex: Male
  Weight: 64.3 kg

DRUGS (7)
  1. PROTONIX [Concomitant]
  2. PENICILLIN [Concomitant]
     Indication: PROPHYLAXIS
     Dosage: 250 MG, BID
     Route: 048
  3. SOLIRIS [Suspect]
     Indication: PAROXYSMAL NOCTURNAL HAEMOGLOBINURIA
     Dosage: 600 MG, QW
     Route: 042
     Dates: start: 20111208
  4. AMITRIPTYLINE HCL [Concomitant]
  5. VALTREX [Concomitant]
     Indication: HERPES SIMPLEX
     Dosage: 1 G, BID
     Route: 048
  6. NORVASC [Concomitant]
  7. SOLIRIS [Suspect]
     Dosage: 900 MG, Q2W
     Route: 042
     Dates: start: 20120105

REACTIONS (6)
  - PLATELET DISORDER [None]
  - STAPHYLOCOCCAL SEPSIS [None]
  - HAEMATOCRIT ABNORMAL [None]
  - DEVICE RELATED INFECTION [None]
  - BLOOD LACTATE DEHYDROGENASE INCREASED [None]
  - HAEMOGLOBIN ABNORMAL [None]
